FAERS Safety Report 15155958 (Version 1)
Quarter: 2018Q3

REPORT INFORMATION
  Report Type: Spontaneous
  Country: GR (occurrence: GR)
  Receive Date: 20180717
  Receipt Date: 20180717
  Transmission Date: 20181010
  Serious: Yes (Hospitalization, Other)
  Sender: FDA-Public Use
  Company Number: GR-US WORLDMEDS, LLC-STA_00020101

PATIENT
  Age: 63 Year
  Sex: Female

DRUGS (10)
  1. SYMMETREL [Concomitant]
     Active Substance: AMANTADINE HYDROCHLORIDE
  2. SINTROM [Concomitant]
     Active Substance: ACENOCOUMAROL
  3. IRAPEXIN [Concomitant]
  4. MADOPAR [Concomitant]
     Active Substance: BENSERAZIDE HYDROCHLORIDE\LEVODOPA
  5. FRUMIL [Concomitant]
     Active Substance: AMILORIDE HYDROCHLORIDE\FUROSEMIDE
  6. TROFOCARD [Concomitant]
  7. APOMORPHINE HYDROCHLORIDE [Suspect]
     Active Substance: APOMORPHINE HYDROCHLORIDE
     Indication: PARKINSON^S DISEASE
  8. UNIMAZOLE [Concomitant]
  9. EMAFER [Concomitant]
  10. CONCOR [Concomitant]
     Active Substance: BISOPROLOL FUMARATE

REACTIONS (2)
  - Flatulence [Recovered/Resolved]
  - Ileus [Recovered/Resolved]
